FAERS Safety Report 5679560-9 (Version None)
Quarter: 2008Q1

REPORT INFORMATION
  Report Type: 
  Country: None (occurrence: None)
  Receive Date: 20080324
  Receipt Date: 20080313
  Transmission Date: 20080703
  Serious: Yes (Other)
  Sender: FDA-Public Use
  Company Number: US019856

PATIENT
  Age: 55 Year
  Sex: Female
  Weight: 99.7913 kg

DRUGS (22)
  1. GABITRIL [Suspect]
     Indication: AGORAPHOBIA
     Dosage: 2 MG QHS ORAL
     Route: 048
     Dates: start: 20060816, end: 20060819
  2. GABITRIL [Suspect]
     Indication: PANIC ATTACK
     Dosage: 2 MG QHS ORAL
     Route: 048
     Dates: start: 20060816, end: 20060819
  3. GABITRIL [Suspect]
     Indication: SLEEP DISORDER
     Dosage: 2 MG QHS ORAL
     Route: 048
     Dates: start: 20060816, end: 20060819
  4. GABITRIL [Suspect]
     Indication: AGORAPHOBIA
     Dosage: 4 MG QHS ORAL
     Route: 048
     Dates: start: 20060820, end: 20060831
  5. GABITRIL [Suspect]
     Indication: PANIC ATTACK
     Dosage: 4 MG QHS ORAL
     Route: 048
     Dates: start: 20060820, end: 20060831
  6. GABITRIL [Suspect]
     Indication: SLEEP DISORDER
     Dosage: 4 MG QHS ORAL
     Route: 048
     Dates: start: 20060820, end: 20060831
  7. GABITRIL [Suspect]
     Indication: AGORAPHOBIA
     Dosage: 6 MG QHS ORAL
     Route: 048
     Dates: start: 20060901, end: 20060912
  8. GABITRIL [Suspect]
     Indication: PANIC ATTACK
     Dosage: 6 MG QHS ORAL
     Route: 048
     Dates: start: 20060901, end: 20060912
  9. GABITRIL [Suspect]
     Indication: SLEEP DISORDER
     Dosage: 6 MG QHS ORAL
     Route: 048
     Dates: start: 20060901, end: 20060912
  10. GABITRIL [Suspect]
     Indication: AGORAPHOBIA
     Dosage: 12 MG QHS ORAL
     Route: 048
     Dates: start: 20060913, end: 20060918
  11. GABITRIL [Suspect]
     Indication: PANIC ATTACK
     Dosage: 12 MG QHS ORAL
     Route: 048
     Dates: start: 20060913, end: 20060918
  12. GABITRIL [Suspect]
     Indication: SLEEP DISORDER
     Dosage: 12 MG QHS ORAL
     Route: 048
     Dates: start: 20060913, end: 20060918
  13. GABITRIL [Suspect]
     Indication: AGORAPHOBIA
     Dosage: 8 MG QHS ORAL
     Route: 048
     Dates: start: 20060919, end: 20061204
  14. GABITRIL [Suspect]
     Indication: PANIC ATTACK
     Dosage: 8 MG QHS ORAL
     Route: 048
     Dates: start: 20060919, end: 20061204
  15. GABITRIL [Suspect]
     Indication: SLEEP DISORDER
     Dosage: 8 MG QHS ORAL
     Route: 048
     Dates: start: 20060919, end: 20061204
  16. ZOLOFT [Suspect]
     Indication: POST-TRAUMATIC STRESS DISORDER
     Dosage: 200 MG QD ORAL
     Route: 048
     Dates: start: 19990101
  17. CYMBALTA [Suspect]
     Indication: NEURALGIA
     Dosage: 90 MG QD ORAL
     Route: 048
     Dates: start: 20051208
  18. LIPITOR [Concomitant]
  19. KLONOPIN [Concomitant]
  20. DILTIAZEM [Concomitant]
  21. AMBIEN [Concomitant]
  22. NEURONTIN [Concomitant]

REACTIONS (17)
  - ADVERSE DRUG REACTION [None]
  - ANXIETY [None]
  - ASTHMA [None]
  - CONDITION AGGRAVATED [None]
  - CONVERSION DISORDER [None]
  - CONVULSION [None]
  - COUGH [None]
  - LOSS OF CONSCIOUSNESS [None]
  - MUSCLE TIGHTNESS [None]
  - NO THERAPEUTIC RESPONSE [None]
  - PANIC ATTACK [None]
  - PNEUMONIA [None]
  - SEDATION [None]
  - THERAPEUTIC RESPONSE DECREASED [None]
  - THROAT TIGHTNESS [None]
  - TREMOR [None]
  - URINARY INCONTINENCE [None]
